FAERS Safety Report 7518727-1 (Version None)
Quarter: 2011Q2

REPORT INFORMATION
  Report Type: 
  Country: None (occurrence: None)
  Receive Date: 20110602
  Receipt Date: 20110527
  Transmission Date: 20111010
  Serious: No
  Sender: FDA-Public Use
  Company Number: US-PFIZER INC-2011115474

PATIENT
  Sex: Female
  Weight: 18.141 kg

DRUGS (2)
  1. QUININE SULFATE [Suspect]
     Indication: CONJUNCTIVITIS INFECTIVE
     Dosage: UNK
  2. CHILDREN'S ADVIL [Suspect]
     Indication: PYREXIA
     Dosage: UNK
     Route: 048

REACTIONS (3)
  - PRURITUS [None]
  - URTICARIA [None]
  - DRUG HYPERSENSITIVITY [None]
